FAERS Safety Report 6989584-7 (Version None)
Quarter: 2010Q3

REPORT INFORMATION
  Report Type: 
  Country: None (occurrence: None)
  Receive Date: 20100916
  Receipt Date: 20100120
  Transmission Date: 20110219
  Serious: Yes (Other)
  Sender: FDA-Public Use
  Company Number: DK-PFIZER INC-2009312887

PATIENT
  Sex: Male
  Weight: 80 kg

DRUGS (3)
  1. LYRICA [Suspect]
     Indication: GENERALISED ANXIETY DISORDER
     Dosage: 25 MG, 3X/DAY
     Dates: start: 20091214, end: 20091224
  2. OXAZEPAM [Concomitant]
     Dosage: 7.5 MG, 3X/DAY
  3. ZOLPIDEM TARTRATE [Concomitant]
     Dosage: 10 MG, 1X/DAY

REACTIONS (5)
  - ARRHYTHMIA [None]
  - CHEST PAIN [None]
  - GENITAL RASH [None]
  - HEADACHE [None]
  - RASH [None]
